FAERS Safety Report 13705310 (Version 3)
Quarter: 2017Q4

REPORT INFORMATION
  Report Type: Report from Study
  Country: IT (occurrence: IT)
  Receive Date: 20170630
  Receipt Date: 20171110
  Transmission Date: 20180320
  Serious: Yes (Hospitalization, Other)
  Sender: FDA-Public Use
  Company Number: IT-ACCORD-052969

PATIENT
  Age: 66 Year
  Sex: Male
  Weight: 53 kg

DRUGS (15)
  1. LERCANIDIPINE [Concomitant]
     Active Substance: LERCANIDIPINE
     Indication: HYPERTENSION
     Route: 048
  2. COTAREG [Concomitant]
     Active Substance: HYDROCHLOROTHIAZIDE\VALSARTAN
     Indication: HYPERTENSION
     Dosage: STRENGTH - 160 MG/12.5 MG
     Route: 048
  3. FLUORINE [Concomitant]
     Active Substance: FLUORINE
     Dates: start: 20161020
  4. ERBITUX [Suspect]
     Active Substance: CETUXIMAB
     Indication: TONSIL CANCER
     Dosage: STRENGTH - 5 MG/ML
     Route: 042
     Dates: start: 20161020
  5. SENNOSIDE A+B/SENNOSIDE A+B CALCIUM [Concomitant]
     Indication: CONSTIPATION
  6. ATENOLOL/ATENOLOL HYDROCHLORIDE [Concomitant]
     Indication: HYPERTENSION
     Route: 048
  7. EUTIROX [Concomitant]
     Active Substance: LEVOTHYROXINE SODIUM
     Indication: HYPOTHYROIDISM
     Route: 048
  8. ARMOLIPID [Concomitant]
     Route: 048
  9. CISPLATIN ACCORD [Suspect]
     Active Substance: CISPLATIN
     Indication: TONSIL CANCER
     Dosage: STRENGTH:1 MG/ML
     Route: 042
     Dates: start: 20161020
  10. FLUOROURACIL ACCORD [Suspect]
     Active Substance: FLUOROURACIL
     Indication: TONSIL CANCER
     Dosage: STRENGTH - 50 MG/ML
     Route: 042
     Dates: start: 20161020
  11. LANSOX [Concomitant]
     Active Substance: LANSOPRAZOLE
     Route: 048
  12. DECADRON [Concomitant]
     Active Substance: DEXAMETHASONE
     Dosage: STRENGTH - 2 MG/ML
     Route: 048
  13. CARBOPLATIN TEVA PHARMA B.V. [Suspect]
     Active Substance: CARBOPLATIN
     Indication: TONSIL CANCER
     Dosage: STRENGTH - 10 MG/ML
     Route: 042
     Dates: start: 20161212, end: 20170123
  14. KCL RETARD [Concomitant]
     Active Substance: POTASSIUM CHLORIDE
     Route: 048
  15. TAVOR (LORAZEPAM) [Concomitant]
     Active Substance: LORAZEPAM
     Route: 048

REACTIONS (9)
  - Anaemia [Recovered/Resolved]
  - Paraesthesia [Unknown]
  - Hypomagnesaemia [Unknown]
  - Thrombocytopenia [Recovered/Resolved]
  - Asthenia [Unknown]
  - Diarrhoea [Unknown]
  - Hypokalaemia [Recovered/Resolved]
  - Neutropenia [Recovered/Resolved]
  - Hypocalcaemia [Unknown]

NARRATIVE: CASE EVENT DATE: 20161025
